FAERS Safety Report 13871249 (Version 1)
Quarter: 2017Q3

REPORT INFORMATION
  Report Type: Spontaneous
  Country: US (occurrence: US)
  Receive Date: 20170816
  Receipt Date: 20170816
  Transmission Date: 20171127
  Serious: Yes (Other)
  Sender: FDA-Public Use
  Company Number: US-009507513-1708USA005813

PATIENT
  Age: 47 Year
  Sex: Female

DRUGS (5)
  1. TEMODAL [Suspect]
     Active Substance: TEMOZOLOMIDE
     Dosage: 150 MG/M2 FOR 5 DAYS EVERY 28 DAYS (3 CYCLES)
     Route: 048
  2. THYMALFASIN [Suspect]
     Active Substance: THYMALFASIN
     Indication: GLIOBLASTOMA MULTIFORME
     Dosage: 1.6 MG, BIW
     Route: 058
  3. INTERFERON BETA NOS [Concomitant]
     Active Substance: INTERFERON BETA
     Indication: GLIOBLASTOMA MULTIFORME
     Dosage: 300 MILION UNITS, QOD FOR 3 DOSES WITH EACH CYCLE, DURING CYCLES 2 AND 3 OF ADJUVANT TEMOZOLOMIDE
     Route: 058
  4. TEMODAL [Suspect]
     Active Substance: TEMOZOLOMIDE
     Indication: GLIOBLASTOMA MULTIFORME
     Dosage: 75 MG/M2, QD
     Route: 048
  5. TEMODAL [Suspect]
     Active Substance: TEMOZOLOMIDE
     Dosage: 75 MG/M2, QD
     Route: 048

REACTIONS (1)
  - Pancytopenia [Unknown]
